FAERS Safety Report 7593535-4 (Version None)
Quarter: 2011Q3

REPORT INFORMATION
  Report Type: 
  Country: None (occurrence: None)
  Receive Date: 20110706
  Receipt Date: 20110624
  Transmission Date: 20111222
  Serious: Yes (Other)
  Sender: FDA-Public Use
  Company Number: US-BAYER-2011-005057

PATIENT
  Sex: Female
  Weight: 86.621 kg

DRUGS (5)
  1. YASMIN [Suspect]
     Indication: CONTRACEPTION
     Dosage: UNK
     Dates: start: 20091201, end: 20100601
  2. YAZ [Suspect]
     Indication: CONTRACEPTION
     Dosage: UNK
     Dates: start: 20091201, end: 20100601
  3. DROSPIRENONE AND ETHINYL ESTRADIOL [Suspect]
     Indication: PRODUCT USED FOR UNKNOWN INDICATION
     Route: 048
  4. YAZ [Suspect]
     Indication: HORMONE LEVEL ABNORMAL
  5. YASMIN [Suspect]
     Indication: HORMONE LEVEL ABNORMAL

REACTIONS (5)
  - PAIN [None]
  - EMOTIONAL DISTRESS [None]
  - INJURY [None]
  - GALLBLADDER DISORDER [None]
  - OFF LABEL USE [None]
